FAERS Safety Report 8208717 (Version 5)
Quarter: 2015Q3

REPORT INFORMATION
  Report Type: Spontaneous
  Country: IT (occurrence: IT)
  Receive Date: 20111028
  Receipt Date: 20150909
  Transmission Date: 20151125
  Serious: Yes (Life-Threatening, Hospitalization, Other)
  Sender: FDA-Public Use
  Company Number: IT-BRISTOL-MYERS SQUIBB COMPANY-16196339

PATIENT
  Age: 12 Year
  Sex: Female

DRUGS (6)
  1. SPRYCEL [Suspect]
     Active Substance: DASATINIB
     Dosage: 80 UNK, UNK
     Route: 065
     Dates: start: 20100824
  2. SPRYCEL [Suspect]
     Active Substance: DASATINIB
     Dosage: 20 UNK, UNK
     Route: 065
     Dates: start: 20100310
  3. SPRYCEL [Suspect]
     Active Substance: DASATINIB
     Dosage: 80 MG, UNK
     Route: 065
     Dates: start: 20100608
  4. SPRYCEL [Suspect]
     Active Substance: DASATINIB
     Dosage: 60 UNK, UNK
     Route: 065
     Dates: start: 20100504
  5. SPRYCEL [Suspect]
     Active Substance: DASATINIB
     Indication: CHRONIC MYELOID LEUKAEMIA
     Dosage: 20 MG, QD
     Route: 065
     Dates: start: 20090713
  6. SPRYCEL [Suspect]
     Active Substance: DASATINIB
     Dosage: 40 UNK, UNK
     Route: 065
     Dates: start: 20110331

REACTIONS (5)
  - Hypertensive encephalopathy [Unknown]
  - Pleural effusion [Unknown]
  - Fluid retention [Recovering/Resolving]
  - Nephrotic syndrome [Recovering/Resolving]
  - Lung infiltration [Unknown]

NARRATIVE: CASE EVENT DATE: 20110919
